FAERS Safety Report 7608194 (Version 6)
Quarter: 2014Q1

REPORT INFORMATION
  Report Type: Report from Study
  Country: PL (occurrence: PL)
  Receive Date: 20100927
  Receipt Date: 20140205
  Transmission Date: 20141002
  Serious: Yes (Hospitalization)
  Sender: FDA-Public Use
  Company Number: PL-BRISTOL-MYERS SQUIBB COMPANY-15302524

PATIENT
  Age: 44 Year
  Sex: Male

DRUGS (2)
  1. ARIPIPRAZOLE [Suspect]
     Indication: SCHIZOPHRENIA
     Route: 048
     Dates: start: 20100902, end: 20100920
  2. OLANZAPINE [Concomitant]
     Indication: SCHIZOPHRENIA
     Dosage: DOSE REDUCED TO 10 MG/D.20-21SEP10-15MG/D.21SEP10-20MG/D
     Dates: start: 2004

REACTIONS (1)
  - Schizophrenia [Recovered/Resolved]
